FAERS Safety Report 4386217-3 (Version None)
Quarter: 2004Q2

REPORT INFORMATION
  Report Type: 
  Country: None (occurrence: None)
  Receive Date: 20040628
  Receipt Date: 20040628
  Transmission Date: 20050107
  Serious: Yes (Hospitalization)
  Sender: FDA-Public Use
  Company Number: None

PATIENT
  Age: 46 Year
  Sex: Male
  Weight: 71.6683 kg

DRUGS (15)
  1. DIVALPROEX SODIUM [Suspect]
     Indication: BIPOLAR DISORDER
     Dosage: 1250MG PO Q HS
     Dates: start: 20040423, end: 20040507
  2. RISPERIDONE [Suspect]
     Indication: BIPOLAR DISORDER
     Dosage: 2MG PO QHS
     Route: 048
     Dates: start: 20040423, end: 20040507
  3. ASPIRIN [Concomitant]
  4. CLOTRIMAZOLE [Concomitant]
  5. DIPHENHYDRAMINE [Concomitant]
  6. FOLIC ACID [Concomitant]
  7. IBUPROFEN [Concomitant]
  8. NPH INSULIN [Concomitant]
  9. LISINOPRIL [Concomitant]
  10. MULTI-VITAMIN [Concomitant]
  11. MAGNESIUM HYDROXIDE TAB [Concomitant]
  12. NICOTINE [Concomitant]
  13. OMEPRAZOLE [Concomitant]
  14. THIAMINE [Concomitant]
  15. TRAZODONE HCL [Concomitant]

REACTIONS (2)
  - HAEMATOCRIT DECREASED [None]
  - HAEMOGLOBIN DECREASED [None]
